FAERS Safety Report 8380086 (Version 2)
Quarter: 2013Q1

REPORT INFORMATION
  Report Type: Report from Study
  Country: US (occurrence: US)
  Receive Date: 20120129
  Receipt Date: 20130129
  Transmission Date: 20140127
  Serious: Yes (Hospitalization, Other)
  Sender: FDA-Public Use
  Company Number: US-ABBOTT-11P-163-0866813-00

PATIENT
  Age: 64 Year
  Sex: Male
  Weight: 79.45 kg

DRUGS (19)
  1. HUMIRA 40 MG/0.8 ML PEN [Suspect]
     Indication: PSORIATIC ARTHROPATHY
     Route: 058
     Dates: start: 201103, end: 20110921
  2. ATENOLOL [Concomitant]
     Indication: PRODUCT USED FOR UNKNOWN INDICATION
  3. CELEBREX [Concomitant]
     Indication: PRODUCT USED FOR UNKNOWN INDICATION
  4. HCTZ [Concomitant]
     Indication: PRODUCT USED FOR UNKNOWN INDICATION
  5. CRESTOR [Concomitant]
     Indication: PRODUCT USED FOR UNKNOWN INDICATION
  6. OMEPRAZOLE [Concomitant]
     Indication: PRODUCT USED FOR UNKNOWN INDICATION
     Dosage: DELAYED RELEASE CAPSULE
  7. STEROID PRE-OP [Concomitant]
     Indication: PRODUCT USED FOR UNKNOWN INDICATION
     Dosage: MASSIVE DOSE PRE-OP
  8. VICODIN [Concomitant]
     Indication: PRODUCT USED FOR UNKNOWN INDICATION
     Dosage: 500MG/5 MG 1 TAB Q6H PRN
  9. DOXEPIN HYDROCHLORIDE [Concomitant]
     Indication: PRODUCT USED FOR UNKNOWN INDICATION
     Dosage: 3 CAPSULE IN EVENING
  10. FOLIC ACID [Concomitant]
     Indication: PRODUCT USED FOR UNKNOWN INDICATION
  11. CALCIUM +D [Concomitant]
     Indication: PRODUCT USED FOR UNKNOWN INDICATION
  12. ASA [Concomitant]
     Indication: PRODUCT USED FOR UNKNOWN INDICATION
  13. METAMUCIL [Concomitant]
     Indication: PRODUCT USED FOR UNKNOWN INDICATION
  14. CENTRUM SILVER [Concomitant]
     Indication: PRODUCT USED FOR UNKNOWN INDICATION
  15. GLUCOSAMINE [Concomitant]
     Indication: PRODUCT USED FOR UNKNOWN INDICATION
  16. OMEGA 3 [Concomitant]
     Indication: PRODUCT USED FOR UNKNOWN INDICATION
  17. FLAX SEED [Concomitant]
     Indication: PRODUCT USED FOR UNKNOWN INDICATION
  18. SALEX [Concomitant]
     Indication: PRODUCT USED FOR UNKNOWN INDICATION
  19. CIALIS [Concomitant]
     Indication: PRODUCT USED FOR UNKNOWN INDICATION

REACTIONS (16)
  - Diverticulitis [Unknown]
  - Symptom masked [Unknown]
  - Appendicectomy [Unknown]
  - Colon operation [Recovering/Resolving]
  - Petechiae [Unknown]
  - Unevaluable event [Unknown]
  - Rheumatoid arthritis [Unknown]
  - Osteoarthritis [Unknown]
  - Rotator cuff syndrome [Unknown]
  - Blood pressure abnormal [Unknown]
  - Cardiac murmur [Unknown]
  - Joint range of motion decreased [Unknown]
  - Synovitis [Unknown]
  - Synovitis [Unknown]
  - Joint range of motion decreased [Unknown]
  - Psoriasis [Unknown]
